FAERS Safety Report 24281200 (Version 1)
Quarter: 2024Q3

REPORT INFORMATION
  Report Type: Spontaneous
  Country: CN (occurrence: CN)
  Receive Date: 20240904
  Receipt Date: 20240904
  Transmission Date: 20241017
  Serious: Yes (Other)
  Sender: AUROBINDO
  Company Number: CN-AUROBINDO-AUR-APL-2024-042728

PATIENT
  Age: 33 Year
  Sex: Female

DRUGS (5)
  1. EVOMELA [Suspect]
     Active Substance: MELPHALAN HYDROCHLORIDE
     Indication: Acute lymphocytic leukaemia
     Dosage: 150 MILLIGRAM (D-4)
     Route: 041
     Dates: start: 20240729, end: 20240729
  2. SEMUSTINE [Suspect]
     Active Substance: SEMUSTINE
     Indication: Acute lymphocytic leukaemia
     Dosage: 350 MILLIGRAM, ONCE A DAY G (D-9)
     Route: 048
     Dates: start: 20240724, end: 20240724
  3. ETOPOSIDE [Suspect]
     Active Substance: ETOPOSIDE
     Indication: Acute lymphocytic leukaemia
     Dosage: 0.5 GRAM, ONCE A DAY
     Route: 041
     Dates: start: 20240725, end: 20240726
  4. BUSULFAN [Suspect]
     Active Substance: BUSULFAN
     Indication: Acute lymphocytic leukaemia
     Dosage: 84.8 MILLIGRAM, ONCE A DAY
     Route: 041
     Dates: start: 20240727, end: 20240728
  5. CYCLOPHOSPHAMIDE [Suspect]
     Active Substance: CYCLOPHOSPHAMIDE
     Indication: Acute lymphocytic leukaemia
     Dosage: 2.6 GRAM
     Route: 041
     Dates: start: 20240730, end: 20240731

REACTIONS (5)
  - Platelet count decreased [Unknown]
  - Hypoaesthesia [Recovering/Resolving]
  - Nausea [Recovering/Resolving]
  - Vomiting [Recovering/Resolving]
  - Diarrhoea [Recovering/Resolving]

NARRATIVE: CASE EVENT DATE: 20240701
